FAERS Safety Report 11175973 (Version 2)
Quarter: 2015Q2

REPORT INFORMATION
  Report Type: Report from Study
  Country: US (occurrence: US)
  Receive Date: 20150609
  Receipt Date: 20150624
  Transmission Date: 20150821
  Serious: Yes (Hospitalization)
  Sender: FDA-Public Use
  Company Number: US-ACTELION-A-NJ2015-118869

PATIENT
  Age: 72 Year
  Sex: Female

DRUGS (14)
  1. POLYSORBATE 40 [Concomitant]
     Dosage: 40 MG, UNK
     Route: 048
  2. SIMVASTATIN. [Concomitant]
     Active Substance: SIMVASTATIN
     Dosage: 20 MG, QPM
     Route: 048
  3. FOLIC ACID. [Concomitant]
     Active Substance: FOLIC ACID
     Dosage: 0.4 MG, UNK
     Route: 048
  4. MACITENTAN [Suspect]
     Active Substance: MACITENTAN
     Indication: PULMONARY ARTERIAL HYPERTENSION
     Dosage: 10 MG, QD
     Route: 048
     Dates: end: 20150513
  5. ACETAMINOPHEN. [Concomitant]
     Active Substance: ACETAMINOPHEN
     Dosage: 500 MG, UNK
     Route: 048
  6. ASCORBIC ACID. [Concomitant]
     Active Substance: ASCORBIC ACID
     Dosage: 500 MG, UNK
     Route: 048
  7. CALCIUM CARBONATE/VITAMIN D3 [Concomitant]
     Dosage: 600 MG, UNK
     Route: 048
  8. OMEPRAZOLE. [Concomitant]
     Active Substance: OMEPRAZOLE
     Dosage: 40 MG, UNK
     Route: 048
  9. CARVEDILOL. [Concomitant]
     Active Substance: CARVEDILOL
     Dosage: 6.25 MG (TITER), BID
     Route: 048
  10. FEBUXOSTAT. [Concomitant]
     Active Substance: FEBUXOSTAT
     Dosage: 40 MG, UNK
     Route: 048
  11. LEVOTHYROXINE SODIUM. [Concomitant]
     Active Substance: LEVOTHYROXINE SODIUM
     Dosage: 75 UNK, UNK
     Route: 048
  12. DARBEPOETIN ALFA [Concomitant]
     Active Substance: DARBEPOETIN ALFA
     Dosage: 100 MCG/ML
     Route: 042
  13. FUROSEMIDE. [Concomitant]
     Active Substance: FUROSEMIDE
     Dosage: 80 MG, BID
     Route: 048
  14. POTASSIUM CHLORIDE. [Concomitant]
     Active Substance: POTASSIUM CHLORIDE
     Dosage: 10 MEQ, QD
     Route: 048

REACTIONS (13)
  - Vitamin B12 decreased [Unknown]
  - Faeces discoloured [Unknown]
  - Blood test abnormal [Unknown]
  - Anaemia [Unknown]
  - Gastrointestinal haemorrhage [Unknown]
  - Transfusion [Unknown]
  - Asthenia [Unknown]
  - Fatigue [Unknown]
  - Small intestinal haemorrhage [Unknown]
  - Arteriovenous malformation [Unknown]
  - Dyspnoea [Unknown]
  - Oedema peripheral [Unknown]
  - Arthralgia [Unknown]

NARRATIVE: CASE EVENT DATE: 201503
